FAERS Safety Report 8536438-0 (Version None)
Quarter: 2012Q3

REPORT INFORMATION
  Report Type: 
  Country: None (occurrence: None)
  Receive Date: 20120725
  Receipt Date: 20120720
  Transmission Date: 20120928
  Serious: Yes (Life-Threatening)
  Sender: FDA-Public Use
  Company Number: SE-ROCHE-1084334

PATIENT
  Sex: Female

DRUGS (3)
  1. ENALAPRIL MALEATE [Concomitant]
     Indication: HYPERTENSION
  2. ACTIVASE [Suspect]
     Indication: ISCHAEMIC STROKE
     Route: 042
     Dates: start: 20120204, end: 20120204
  3. SIMVASTATIN [Concomitant]
     Indication: HYPERLIPIDAEMIA

REACTIONS (4)
  - HYPERSENSITIVITY [None]
  - SWOLLEN TONGUE [None]
  - DYSPNOEA [None]
  - OEDEMA MOUTH [None]
